FAERS Safety Report 8447266-9 (Version None)
Quarter: 2012Q2

REPORT INFORMATION
  Report Type: 
  Country: None (occurrence: None)
  Receive Date: 20120619
  Receipt Date: 20120611
  Transmission Date: 20120825
  Serious: Yes (Hospitalization, Other)
  Sender: FDA-Public Use
  Company Number: PHHY2012FR051739

PATIENT
  Age: 75 Year
  Sex: Female
  Weight: 60 kg

DRUGS (5)
  1. EXJADE [Suspect]
     Indication: HAEMOCHROMATOSIS
     Dosage: 500 MG, QD
     Dates: end: 20111209
  2. NEORECORMON [Concomitant]
     Indication: ANAEMIA
  3. ACETAMINOPHEN [Concomitant]
  4. ESOMEPRAZOLE [Concomitant]
     Dosage: 20 MG, QD
  5. AMLODIPINE BESYLATE [Concomitant]
     Indication: HYPERTENSION
     Dosage: 5 MG, QD

REACTIONS (10)
  - HEART RATE INCREASED [None]
  - ERYTHROSIS [None]
  - BLOOD PRESSURE DIASTOLIC DECREASED [None]
  - CARDIAC MURMUR [None]
  - BODY TEMPERATURE INCREASED [None]
  - BONE MARROW FAILURE [None]
  - CYTOLYTIC HEPATITIS [None]
  - LYMPHADENOPATHY [None]
  - OEDEMA PERIPHERAL [None]
  - CHOLESTASIS [None]
